FAERS Safety Report 7263890-3 (Version None)
Quarter: 2011Q1

REPORT INFORMATION
  Report Type: 
  Country: None (occurrence: None)
  Receive Date: 20110130
  Receipt Date: 20101207
  Transmission Date: 20110831
  Serious: Yes (Disabling)
  Sender: FDA-Public Use
  Company Number: US-ABBOTT-10P-163-0690211-00

PATIENT
  Sex: Male
  Weight: 97.61 kg

DRUGS (6)
  1. IMURAN [Concomitant]
     Indication: CROHN'S DISEASE
  2. ZEGERID [Concomitant]
     Indication: GASTROOESOPHAGEAL REFLUX DISEASE
  3. METFORMIN HYDROCHLORIDE [Concomitant]
     Indication: DIABETES MELLITUS
     Dates: start: 20060101
  4. HUMIRA [Suspect]
     Indication: CROHN'S DISEASE
     Dates: start: 20071101
  5. LIPITOR [Concomitant]
     Indication: BLOOD CHOLESTEROL INCREASED
     Dates: start: 20060101
  6. LISINOPRIL [Concomitant]
     Indication: PRODUCT USED FOR UNKNOWN INDICATION

REACTIONS (3)
  - RENAL CANCER [None]
  - NASOPHARYNGITIS [None]
  - HYPERTENSION [None]
